FAERS Safety Report 9286457 (Version 1)
Quarter: 2013Q2

REPORT INFORMATION
  Report Type: Spontaneous
  Country: US (occurrence: None)
  Receive Date: 20130510
  Receipt Date: 20130510
  Transmission Date: 20140414
  Serious: Yes (Hospitalization)
  Sender: FDA-Public Use
  Company Number: None

PATIENT
  Age: 82 Year
  Sex: Male
  Weight: 102.9 kg

DRUGS (3)
  1. COUMADIN [Suspect]
     Indication: DEEP VEIN THROMBOSIS
     Route: 048
  2. FLUCONAZOLE [Suspect]
     Indication: CRYPTOCOCCAL FUNGAEMIA
     Route: 048
  3. KEFLEX [Suspect]
     Indication: ALPHA HAEMOLYTIC STREPTOCOCCAL INFECTION
     Route: 048

REACTIONS (3)
  - Epistaxis [None]
  - Drug interaction [None]
  - International normalised ratio increased [None]
